FAERS Safety Report 8659235 (Version 2)
Quarter: 2012Q4

REPORT INFORMATION
  Report Type: 
  Country: FR (occurrence: FR)
  Receive Date: 20120711
  Receipt Date: 20121217
  Transmission Date: 20130627
  Serious: Yes (Hospitalization)
  Sender: FDA-Public Use
  Company Number: PHHY2012FR058603

PATIENT
  Age: 28 Year
  Sex: Male

DRUGS (6)
  1. CERTICAN [Suspect]
     Indication: HEART TRANSPLANT
     Dosage: 0.75 mg, BID
     Route: 048
     Dates: end: 20120620
  2. CELLCEPT [Suspect]
     Indication: HEART TRANSPLANT
     Dosage: 1000 mg, BID
     Route: 048
     Dates: start: 20110820
  3. NEORAL [Concomitant]
     Dosage: UNK UKN, UNK
  4. NEORAL [Concomitant]
     Dosage: 150 mg, BID
  5. ROVALCYTE [Concomitant]
  6. RUBOZINC [Concomitant]

REACTIONS (4)
  - Anal ulcer [Recovered/Resolved]
  - Mouth ulceration [Recovered/Resolved]
  - Pain [Recovered/Resolved]
  - Pyrexia [Recovered/Resolved]
